FAERS Safety Report 13526283 (Version 1)
Quarter: 2017Q2

REPORT INFORMATION
  Report Type: Report from Study
  Country: CN (occurrence: CN)
  Receive Date: 20170509
  Receipt Date: 20170509
  Transmission Date: 20170830
  Serious: Yes (Death)
  Sender: FDA-Public Use
  Company Number: CN-ROCHE-1932197

PATIENT

DRUGS (2)
  1. ALTEPLASE [Suspect]
     Active Substance: ALTEPLASE
     Indication: CEREBRAL INFARCTION
     Dosage: WITH A MAXIMUM DOSE OF 90MG, FIRST 10 PERCENT OF TOTAL THROUGH INTRAVENOUS INJECTION IN 1 MINUTE AND
     Route: 042
  2. ALTEPLASE [Suspect]
     Active Substance: ALTEPLASE
     Dosage: WITH A MAXIMUM DOSE OF 90MG, FIRST 10 PERCENT OF TOTAL THROUGH INTRAVENOUS INJECTION IN 1 MINUTE AND
     Route: 041

REACTIONS (1)
  - Atrioventricular block complete [Fatal]
